FAERS Safety Report 8009321-7 (Version None)
Quarter: 2011Q4

REPORT INFORMATION
  Report Type: 
  Country: None (occurrence: None)
  Receive Date: 20111227
  Receipt Date: 20111216
  Transmission Date: 20120403
  Serious: Yes (Hospitalization)
  Sender: FDA-Public Use
  Company Number: US-ELI_LILLY_AND_COMPANY-US201111001557

PATIENT
  Sex: Female
  Weight: 54.875 kg

DRUGS (19)
  1. ACTONEL [Concomitant]
  2. POTASSIUM [Concomitant]
     Dosage: UNK, UNKNOWN
  3. OLANZAPINE [Suspect]
     Indication: SCHIZOPHRENIA
     Dosage: 300 MG, UNK
     Route: 030
     Dates: start: 20110223, end: 20110308
  4. TOPROL-XL [Concomitant]
     Dosage: 50 MG, UNKNOWN
  5. OLANZAPINE [Suspect]
     Dosage: 300 MG, UNK
     Route: 030
     Dates: start: 20110907, end: 20111004
  6. ASPIRIN [Concomitant]
     Dosage: 81 MG, UNKNOWN
  7. OLANZAPINE [Suspect]
     Dosage: 300 MG, UNK
     Route: 030
     Dates: start: 20110504, end: 20110531
  8. OLANZAPINE [Suspect]
     Dosage: 300 MG, UNK
     Route: 030
     Dates: start: 20110601, end: 20110628
  9. OLANZAPINE [Suspect]
     Dosage: 300 MG, UNK
     Route: 030
     Dates: start: 20110629, end: 20110810
  10. PRAVACHOL [Concomitant]
     Dosage: 40 MG, UNKNOWN
  11. OLANZAPINE [Suspect]
     Dosage: 300 MG, UNK
     Route: 030
     Dates: start: 20110323, end: 20110405
  12. LIPITOR [Concomitant]
     Dosage: UNK, UNKNOWN
  13. OLANZAPINE [Suspect]
     Dosage: 300 MG, UNK
     Route: 030
     Dates: start: 20110309, end: 20110322
  14. OLANZAPINE [Suspect]
     Dosage: 300 MG, UNK
     Route: 030
     Dates: start: 20110406, end: 20110503
  15. OLANZAPINE [Suspect]
     Dosage: 300 MG, UNK
     Route: 030
     Dates: start: 20111005, end: 20111101
  16. OLANZAPINE [Suspect]
     Dosage: 300 MG, UNK
     Route: 030
     Dates: start: 20111102
  17. CARDIZEM CD [Concomitant]
     Dosage: 240 MG, UNKNOWN
  18. OLANZAPINE [Suspect]
     Dosage: 300 MG, UNK
     Route: 030
     Dates: start: 20110811, end: 20110906
  19. ZESTRIL [Concomitant]
     Dosage: 10 MG, UNKNOWN

REACTIONS (8)
  - SEDATION [None]
  - DISORIENTATION [None]
  - DEPRESSED LEVEL OF CONSCIOUSNESS [None]
  - DEHYDRATION [None]
  - NUTRITIONAL CONDITION ABNORMAL [None]
  - HYPOTENSION [None]
  - WEIGHT DECREASED [None]
  - INCORRECT STORAGE OF DRUG [None]
